FAERS Safety Report 7294763-8 (Version None)
Quarter: 2011Q1

REPORT INFORMATION
  Report Type: 
  Country: None (occurrence: None)
  Receive Date: 20110216
  Receipt Date: 20110208
  Transmission Date: 20110831
  Serious: Yes (Hospitalization, Other)
  Sender: FDA-Public Use
  Company Number: US-US-EMD SERONO, INC.-230306J09USA

PATIENT
  Sex: Male
  Weight: 104 kg

DRUGS (1)
  1. REBIF [Suspect]
     Indication: MULTIPLE SCLEROSIS
     Route: 058
     Dates: start: 20090304, end: 20110125

REACTIONS (3)
  - PERIPHERAL EMBOLISM [None]
  - THROMBOSIS [None]
  - MULTIPLE SCLEROSIS RELAPSE [None]
